FAERS Safety Report 8934988 (Version 1)
Quarter: 2012Q4

REPORT INFORMATION
  Report Type: 
  Country: US (occurrence: US)
  Receive Date: 20121129
  Receipt Date: 20121129
  Transmission Date: 20130627
  Serious: Yes (Hospitalization, Other)
  Sender: FDA-Public Use
  Company Number: US-PFIZER INC-2012297500

PATIENT
  Age: 42 Year
  Sex: Female

DRUGS (4)
  1. QUETIAPINE FUMARATE [Suspect]
     Indication: DEPRESSIVE DISORDER
     Dosage: UNK
     Route: 065
  2. CITALOPRAM [Suspect]
     Indication: DEPRESSIVE DISORDER
     Dosage: UNK
     Route: 065
  3. ONDANSETRON [Suspect]
     Indication: DRUG USE FOR UNKNOWN INDICATION
     Dosage: Single dose, UNK
     Route: 065
  4. ADDERALL [Suspect]
     Indication: DEPRESSIVE DISORDER
     Dosage: UNK
     Route: 065

REACTIONS (14)
  - Serotonin syndrome [Unknown]
  - Clonus [Recovered/Resolved]
  - Unresponsive to stimuli [Recovered/Resolved]
  - Muscle rigidity [Recovering/Resolving]
  - Blood pressure fluctuation [Recovered/Resolved]
  - Eye movement disorder [Recovered/Resolved]
  - Neuromyopathy [Unknown]
  - Psychomotor hyperactivity [Unknown]
  - Mental status changes [Recovered/Resolved]
  - Restlessness [Unknown]
  - Agitation [Unknown]
  - Pyrexia [Unknown]
  - Condition aggravated [Unknown]
  - Eye movement disorder [Recovered/Resolved]
